FAERS Safety Report 14650375 (Version 1)
Quarter: 2018Q1

REPORT INFORMATION
  Report Type: Spontaneous
  Country: IT (occurrence: IT)
  Receive Date: 20180316
  Receipt Date: 20180316
  Transmission Date: 20180509
  Serious: Yes (Hospitalization, Other)
  Sender: FDA-Public Use
  Company Number: IT-BAYER-2017-094967

PATIENT
  Age: 63 Year
  Sex: Male

DRUGS (33)
  1. CETIRIZINE [Suspect]
     Active Substance: CETIRIZINE HYDROCHLORIDE
     Dosage: 7.5 MG, UNK
     Route: 048
     Dates: start: 20170426, end: 20170426
  2. FLUOXETINA [Suspect]
     Active Substance: FLUOXETINE HYDROCHLORIDE
     Indication: PRODUCT USED FOR UNKNOWN INDICATION
     Dosage: 15 MG, UNK
     Route: 048
     Dates: start: 20170426, end: 20170426
  3. ASPIRIN. [Suspect]
     Active Substance: ASPIRIN
     Dosage: 12 DF, UNK
     Route: 048
     Dates: start: 20170426, end: 20170426
  4. METFORMIN [Concomitant]
     Active Substance: METFORMIN HYDROCHLORIDE
     Indication: DIABETES MELLITUS
     Route: 065
  5. FLUOXETINE [Suspect]
     Active Substance: FLUOXETINE HYDROCHLORIDE
     Dosage: 20 MG, ONCE
     Route: 048
     Dates: start: 20170426, end: 20170426
  6. CETIRIZINE [Suspect]
     Active Substance: CETIRIZINE HYDROCHLORIDE
     Dosage: 100 MG, UNK
     Route: 048
     Dates: start: 20170426, end: 20170426
  7. FLUOXETINA [Suspect]
     Active Substance: FLUOXETINE HYDROCHLORIDE
     Indication: PRODUCT USED FOR UNKNOWN INDICATION
     Dosage: 20 MG, UNK
     Route: 048
     Dates: start: 20170426, end: 20170426
  8. TACHIPIRINA [Suspect]
     Active Substance: ACETAMINOPHEN
     Dosage: 8 G, UNK
     Route: 048
     Dates: start: 20170426, end: 20170426
  9. ASPIRIN. [Suspect]
     Active Substance: ASPIRIN
     Dosage: 15 MG, UNK
     Route: 048
     Dates: start: 20170426, end: 20170426
  10. BISOPROLOL FUMARATE. [Concomitant]
     Active Substance: BISOPROLOL FUMARATE
     Indication: PRODUCT USED FOR UNKNOWN INDICATION
     Dosage: 1.25 MG, UNK
     Route: 065
  11. FLUOXETINA [Suspect]
     Active Substance: FLUOXETINE HYDROCHLORIDE
     Indication: PRODUCT USED FOR UNKNOWN INDICATION
     Dosage: 8 G, UNK
     Route: 048
     Dates: start: 20170426, end: 20170426
  12. ASPIRIN. [Suspect]
     Active Substance: ASPIRIN
     Dosage: 20 MG, UNK
     Route: 048
     Dates: start: 20170426, end: 20170426
  13. ASPIRIN. [Suspect]
     Active Substance: ASPIRIN
     Dosage: 10 MG, UNK
     Route: 065
  14. CETIRIZINE [Suspect]
     Active Substance: CETIRIZINE HYDROCHLORIDE
     Dosage: 15 MG, UNK
     Route: 048
     Dates: start: 20170426, end: 20170426
  15. ATORVASTATIN CALCIUM. [Suspect]
     Active Substance: ATORVASTATIN CALCIUM
     Indication: MYOCARDIAL ISCHAEMIA
     Dosage: 375 MG, UNK
     Route: 065
  16. ACTIGRIP [Suspect]
     Active Substance: ACETAMINOPHEN\PSEUDOEPHEDRINE HYDROCHLORIDE\TRIPROLIDINE HYDROCHLORIDE
     Dosage: 12 DF, ONCE
     Route: 048
     Dates: start: 20170426, end: 20170426
  17. FLUOXETINA [Suspect]
     Active Substance: FLUOXETINE HYDROCHLORIDE
     Indication: PRODUCT USED FOR UNKNOWN INDICATION
     Dosage: 100 MG, UNK
     Route: 048
     Dates: start: 20170426, end: 20170426
  18. REPAGLINIDE. [Concomitant]
     Active Substance: REPAGLINIDE
     Indication: DIABETES MELLITUS
     Dosage: 6 G, UNK
     Route: 065
  19. ATORVASTATIN CALCIUM. [Suspect]
     Active Substance: ATORVASTATIN CALCIUM
     Indication: AORTIC INJURY
     Dosage: 100 MG, UNK
     Route: 065
  20. FLUOXETINA [Suspect]
     Active Substance: FLUOXETINE HYDROCHLORIDE
     Indication: PRODUCT USED FOR UNKNOWN INDICATION
     Dosage: 7.5 MG, UNK
     Route: 048
     Dates: start: 20170426, end: 20170426
  21. ASPIRIN. [Suspect]
     Active Substance: ASPIRIN
     Dosage: 7.5 MG, UNK
     Route: 048
     Dates: start: 20170426, end: 20170426
  22. ASPIRIN. [Suspect]
     Active Substance: ASPIRIN
     Dosage: 375 MG, UNK
     Route: 065
     Dates: start: 20171231
  23. PARACETAMOL [Suspect]
     Active Substance: ACETAMINOPHEN
     Dosage: 8 G, ONCE
     Route: 048
     Dates: start: 20170426, end: 20170426
  24. XANAX [Suspect]
     Active Substance: ALPRAZOLAM
     Dosage: 15 MG, ONCE
     Route: 048
     Dates: start: 20170426, end: 20170426
  25. CETIRIZINE [Suspect]
     Active Substance: CETIRIZINE HYDROCHLORIDE
     Dosage: 12 DF, UNK
     Route: 048
     Dates: start: 20170426, end: 20170426
  26. ASPIRIN. [Suspect]
     Active Substance: ASPIRIN
     Dosage: 100 MG, UNK
     Route: 065
     Dates: start: 20170426, end: 20170426
  27. METFORMIN [Concomitant]
     Active Substance: METFORMIN HYDROCHLORIDE
     Indication: DIABETES MELLITUS
     Route: 065
  28. TELMISARTAN. [Concomitant]
     Active Substance: TELMISARTAN
     Indication: PRODUCT USED FOR UNKNOWN INDICATION
     Dosage: 40 MG, UNK
     Route: 065
  29. XANAX [Suspect]
     Active Substance: ALPRAZOLAM
     Dosage: 7.5 MG, ONCE
     Route: 048
     Dates: start: 20170426, end: 20170426
  30. CETIRIZINE [Suspect]
     Active Substance: CETIRIZINE HYDROCHLORIDE
     Dosage: 20 MG, UNK
     Route: 048
     Dates: start: 20170426, end: 20170426
  31. ATORVASTATIN CALCIUM. [Suspect]
     Active Substance: ATORVASTATIN CALCIUM
     Indication: PRODUCT USED FOR UNKNOWN INDICATION
     Dosage: 10 MG, UNK
     Route: 065
  32. FLUOXETINA [Suspect]
     Active Substance: FLUOXETINE HYDROCHLORIDE
     Indication: PRODUCT USED FOR UNKNOWN INDICATION
     Dosage: 12 DF, UNK
     Route: 048
     Dates: start: 20170426, end: 20170426
  33. REPAGLINIDE. [Concomitant]
     Active Substance: REPAGLINIDE
     Indication: DIABETES MELLITUS

REACTIONS (3)
  - Overdose [Recovering/Resolving]
  - Drug abuse [Recovering/Resolving]
  - Intentional self-injury [Recovering/Resolving]

NARRATIVE: CASE EVENT DATE: 20170426
